FAERS Safety Report 6864979-0 (Version None)
Quarter: 2010Q3

REPORT INFORMATION
  Report Type: 
  Country: None (occurrence: None)
  Receive Date: 20100721
  Receipt Date: 20080407
  Transmission Date: 20110219
  Serious: No
  Sender: FDA-Public Use
  Company Number: US-PFIZER INC-2008032134

PATIENT
  Sex: Female
  Weight: 55.454 kg

DRUGS (6)
  1. CHANTIX [Suspect]
     Indication: SMOKING CESSATION THERAPY
     Dates: start: 20080229, end: 20080301
  2. SURMONTIL [Concomitant]
     Indication: DEPRESSION
  3. PROZAC [Concomitant]
  4. PREMARIN [Concomitant]
     Indication: HOT FLUSH
  5. PROTONIX [Concomitant]
     Indication: GASTROOESOPHAGEAL REFLUX DISEASE
  6. LYRICA [Concomitant]

REACTIONS (2)
  - DIZZINESS [None]
  - VOMITING [None]
